FAERS Safety Report 26011323 (Version 1)
Quarter: 2025Q4

REPORT INFORMATION
  Report Type: Spontaneous
  Country: US (occurrence: US)
  Receive Date: 20251107
  Receipt Date: 20251107
  Transmission Date: 20260117
  Serious: Yes (Other)
  Sender: BAYER HEALTHCARE LLC
  Company Number: US-BAYER-2025A147214

PATIENT
  Sex: Male

DRUGS (1)
  1. LOTRIMIN ANTIFUNGAL (MICONAZOLE NITRATE) [Suspect]
     Active Substance: MICONAZOLE NITRATE

REACTIONS (5)
  - Mesothelioma [None]
  - Exposure to chemical pollution [None]
  - Injury [None]
  - Pain [None]
  - Anxiety [None]
